FAERS Safety Report 11485469 (Version 4)
Quarter: 2015Q4

REPORT INFORMATION
  Report Type: Report from Study
  Country: FR (occurrence: FR)
  Receive Date: 20150909
  Receipt Date: 20151111
  Transmission Date: 20160304
  Serious: Yes (Hospitalization, Other)
  Sender: FDA-Public Use
  Company Number: FR-BRISTOL-MYERS SQUIBB COMPANY-BMS-2015-058580

PATIENT
  Age: 71 Year
  Sex: Male
  Weight: 88 kg

DRUGS (4)
  1. NIVOLUMAB [Suspect]
     Active Substance: NIVOLUMAB
     Dosage: 3 MG/KG, 222 MG
     Route: 065
     Dates: start: 20151009
  2. NIVOLUMAB [Suspect]
     Active Substance: NIVOLUMAB
     Indication: MALIGNANT MELANOMA
     Dosage: 3 MG/KG, 270 MG
     Route: 065
  3. NIVOLUMAB [Suspect]
     Active Substance: NIVOLUMAB
     Dosage: 3 MG/KG, 222 MG
     Route: 065
     Dates: start: 20151023
  4. NIVOLUMAB [Suspect]
     Active Substance: NIVOLUMAB
     Dosage: 3 MG/KG, UNK
     Route: 065
     Dates: start: 20150821

REACTIONS (12)
  - Thyroxine free abnormal [Unknown]
  - Normochromic normocytic anaemia [Unknown]
  - Hyponatraemia [Unknown]
  - Alanine aminotransferase abnormal [Unknown]
  - Lymphocyte count abnormal [Unknown]
  - Anaemia [Unknown]
  - Aspartate aminotransferase abnormal [Unknown]
  - Sepsis [Recovered/Resolved]
  - Haemoglobin decreased [Unknown]
  - Blood thyroid stimulating hormone abnormal [Unknown]
  - Neutrophil count abnormal [Unknown]
  - Blood alkaline phosphatase abnormal [Unknown]

NARRATIVE: CASE EVENT DATE: 20150810
